FAERS Safety Report 14967274 (Version 1)
Quarter: 2018Q3

REPORT INFORMATION
  Report Type: Spontaneous
  Country: CN (occurrence: CN)
  Receive Date: 20180604
  Receipt Date: 20180604
  Transmission Date: 20181010
  Serious: Yes (Death, Other)
  Sender: FDA-Public Use
  Company Number: CN-CHEPLA-C20180266_02

PATIENT

DRUGS (4)
  1. ATRA [Suspect]
     Active Substance: TRETINOIN
  2. 6?MERCAPTOPURINE [Suspect]
     Active Substance: MERCAPTOPURINE
  3. REALGAR?INDIGO NATURALIS (RIF) (FU FANG HUANG DAI PIAN) [Suspect]
     Active Substance: HERBALS
  4. METHOTREXATE. [Suspect]
     Active Substance: METHOTREXATE

REACTIONS (9)
  - Respiratory tract infection [Unknown]
  - Leukaemia recurrent [Unknown]
  - Acute promyelocytic leukaemia differentiation syndrome [Unknown]
  - Cardiac disorder [Unknown]
  - Mucosal infection [Unknown]
  - Gastrointestinal disorder [Unknown]
  - Skin infection [Unknown]
  - Death [Fatal]
  - Liver injury [Unknown]
